FAERS Safety Report 19801926 (Version 1)
Quarter: 2021Q3

REPORT INFORMATION
  Report Type: Spontaneous
  Country: US (occurrence: US)
  Receive Date: 20210908
  Receipt Date: 20210908
  Transmission Date: 20211014
  Serious: No
  Sender: FDA-Public Use
  Company Number: US-CELGENEUS-USA-20210900512

PATIENT
  Sex: Male
  Weight: 83.99 kg

DRUGS (4)
  1. POMALYST [Suspect]
     Active Substance: POMALIDOMIDE
     Indication: PLASMA CELL MYELOMA
     Dosage: 4 MILLIGRAM
     Route: 048
     Dates: start: 202009
  2. POMALYST [Suspect]
     Active Substance: POMALIDOMIDE
     Dosage: 2 MILLIGRAM
     Route: 048
     Dates: start: 20200918
  3. POMALYST [Suspect]
     Active Substance: POMALIDOMIDE
     Dosage: 3?2 MG
     Route: 048
     Dates: start: 202011
  4. POMALYST [Suspect]
     Active Substance: POMALIDOMIDE
     Dosage: 1 MILIGRAM
     Route: 048
     Dates: start: 202109

REACTIONS (5)
  - Dyspnoea [Unknown]
  - Swelling [Unknown]
  - Fatigue [Unknown]
  - Discomfort [Unknown]
  - Feeling abnormal [Unknown]
